FAERS Safety Report 11376832 (Version 1)
Quarter: 2015Q3

REPORT INFORMATION
  Report Type: Report from Study
  Country: US (occurrence: US)
  Receive Date: 20150813
  Receipt Date: 20150813
  Transmission Date: 20151125
  Serious: Yes (Hospitalization)
  Sender: FDA-Public Use
  Company Number: US-EXELIXIS-XL18415005601

PATIENT
  Age: 64 Year
  Sex: Male
  Weight: 88.5 kg

DRUGS (28)
  1. SPIRIVA [Concomitant]
     Active Substance: TIOTROPIUM BROMIDE MONOHYDRATE
  2. XL184 [Suspect]
     Active Substance: CABOZANTINIB
     Indication: PROSTATE CANCER
     Dosage: 60 MG, QD
     Route: 048
     Dates: start: 20140617, end: 2014
  3. BUPROPION. [Concomitant]
     Active Substance: BUPROPION
  4. NEURONTIN [Concomitant]
     Active Substance: GABAPENTIN
  5. GREEN TEA LEAF EXTRACT [Concomitant]
  6. COMBIVENT RESPIMAT [Concomitant]
     Active Substance: ALBUTEROL SULFATE\IPRATROPIUM BROMIDE
  7. MEGACE [Concomitant]
     Active Substance: MEGESTROL ACETATE
  8. ZOCOR [Concomitant]
     Active Substance: SIMVASTATIN
  9. ASPIRIN. [Concomitant]
     Active Substance: ASPIRIN
  10. MAG-OX [Concomitant]
     Active Substance: MAGNESIUM OXIDE
  11. XL184 [Suspect]
     Active Substance: CABOZANTINIB
     Dosage: 20 MG, QD
     Route: 048
     Dates: start: 20150424, end: 20150803
  12. CYMBALTA [Concomitant]
     Active Substance: DULOXETINE HYDROCHLORIDE
  13. FLONASE [Concomitant]
     Active Substance: FLUTICASONE PROPIONATE
  14. ATARAX [Concomitant]
     Active Substance: HYDROXYZINE\HYDROXYZINE HYDROCHLORIDE
  15. IMODIUM [Concomitant]
     Active Substance: LOPERAMIDE HYDROCHLORIDE
  16. CLARITIN [Concomitant]
     Active Substance: LORATADINE
  17. XL184 [Suspect]
     Active Substance: CABOZANTINIB
     Dosage: 40 MG, QD
     Route: 048
     Dates: start: 20141002, end: 2015
  18. SYNTHROID [Concomitant]
     Active Substance: LEVOTHYROXINE SODIUM
  19. PROAIR HFA [Concomitant]
     Active Substance: ALBUTEROL SULFATE
  20. CALCIUM CARBONATE. [Concomitant]
     Active Substance: CALCIUM CARBONATE
  21. TEMOVATE [Concomitant]
     Active Substance: CLOBETASOL PROPIONATE
  22. VITAMIN D3 [Concomitant]
     Active Substance: CHOLECALCIFEROL
  23. ADVAIR HFA [Concomitant]
     Active Substance: FLUTICASONE PROPIONATE\SALMETEROL XINAFOATE
  24. LUPRON [Concomitant]
     Active Substance: LEUPROLIDE ACETATE
  25. ZOFRAN [Concomitant]
     Active Substance: ONDANSETRON HYDROCHLORIDE
  26. KLOR-CON [Concomitant]
     Active Substance: POTASSIUM CHLORIDE
  27. DESYREL [Concomitant]
     Active Substance: TRAZODONE HYDROCHLORIDE
  28. CARMOL-20 [Concomitant]

REACTIONS (1)
  - Colitis [Recovered/Resolved]

NARRATIVE: CASE EVENT DATE: 20150801
